FAERS Safety Report 7799391-3 (Version None)
Quarter: 2011Q4

REPORT INFORMATION
  Report Type: 
  Country: None (occurrence: None)
  Receive Date: 20111004
  Receipt Date: 20110920
  Transmission Date: 20120403
  Serious: Yes (Hospitalization)
  Sender: FDA-Public Use
  Company Number: 1000024327

PATIENT
  Age: 87 Year
  Sex: Female

DRUGS (13)
  1. ROFLUMILAST (ROFLUMILAST) (500 MICROGRAM, TABLETS) [Suspect]
     Indication: CHRONIC OBSTRUCTIVE PULMONARY DISEASE
     Dosage: ORAL
     Route: 048
     Dates: start: 20110627, end: 20110701
  2. ROFLUMILAST (ROFLUMILAST) (500 MICROGRAM, TABLETS) [Suspect]
     Indication: BRONCHITIS CHRONIC
     Dosage: ORAL
     Route: 048
     Dates: start: 20110627, end: 20110701
  3. ATROVENT [Concomitant]
  4. ZITHROMAX [Concomitant]
  5. SERETIDE (FLUTICASONE, SALMETERIOL) [Concomitant]
  6. METHYLPREDNISOLONE [Concomitant]
  7. NORVASC [Concomitant]
  8. DIAMICRON (GLICLAZIDE) [Concomitant]
  9. METFORMIN HYDROCHLORIDE [Concomitant]
  10. OMEPRAZOLE [Concomitant]
  11. OXYGEN [Concomitant]
  12. SIMVASTATIN [Concomitant]
  13. SEGURIL (FUROSEMIDE) [Concomitant]

REACTIONS (12)
  - RENAL CYST [None]
  - CHOLELITHIASIS [None]
  - PANCREATITIS ACUTE [None]
  - CARDIOMEGALY [None]
  - AORTIC ARTERIOSCLEROSIS [None]
  - PLEURAL EFFUSION [None]
  - BILE DUCT STONE [None]
  - OSTEOARTHRITIS [None]
  - HEPATIC CYST [None]
  - HAEMOGLOBIN DECREASED [None]
  - BLOOD GLUCOSE INCREASED [None]
  - LIPOGRANULOMA [None]
